FAERS Safety Report 9836453 (Version 4)
Quarter: 2014Q1

REPORT INFORMATION
  Report Type: Report from Study
  Country: CN (occurrence: CN)
  Receive Date: 20140123
  Receipt Date: 20140312
  Transmission Date: 20141002
  Serious: Yes (Hospitalization)
  Sender: FDA-Public Use
  Company Number: CN-ROCHE-1334068

PATIENT
  Age: 63 Year
  Sex: Female
  Weight: 49 kg

DRUGS (20)
  1. TRASTUZUMAB [Suspect]
     Indication: METASTATIC GASTRIC CANCER
     Dosage: LOADING DOSE, ON DAY 1 OF CYCLE 1
     Route: 042
     Dates: start: 20131022
  2. TRASTUZUMAB [Suspect]
     Dosage: MAINTAINENCE DOSE (10 MG/KG), LAST DOSE PRIOR TO EVENT: 02/JAN/2014
     Route: 042
  3. CAPECITABINE [Suspect]
     Indication: METASTATIC GASTRIC CANCER
     Dosage: ON DAYS1-14, LAST DOSE PRIOR TO EVENT:02/JAN/2014, DOSE: 2000 MG
     Route: 048
     Dates: start: 20131022
  4. CISPLATIN [Suspect]
     Indication: METASTATIC GASTRIC CANCER
     Dosage: DOSAGE ON DAY 1, LAST DOSE PRIOR TO EVENT:02/JAN/2014 (92.4MG)
     Route: 042
     Dates: start: 20131022
  5. ENTERAL NUTRITION [Concomitant]
     Indication: NUTRITIONAL SUPPLEMENTATION
     Route: 065
     Dates: start: 20140120
  6. VALSARTAN [Concomitant]
     Indication: HYPERTENSION
     Route: 065
  7. POTASSIUM CHLORIDE [Concomitant]
     Route: 065
     Dates: start: 20131208
  8. FUROSEMIDE [Concomitant]
     Route: 065
     Dates: start: 20131208
  9. OMEPRAZOLE SODIUM [Concomitant]
     Route: 065
     Dates: start: 20131209
  10. PALONOSETRON HYDROCHLORIDE [Concomitant]
     Route: 065
     Dates: start: 20131209
  11. DEXAMETHASONE SODIUM PHOSPHATE [Concomitant]
     Route: 065
     Dates: start: 20131209
  12. DEXAMETHASONE SODIUM PHOSPHATE [Concomitant]
     Route: 065
     Dates: start: 20140116, end: 20140116
  13. MANNITOL 20% [Concomitant]
     Route: 065
     Dates: start: 20131209
  14. IRON SUCROSE [Concomitant]
     Indication: ANAEMIA
     Route: 065
     Dates: start: 20140114, end: 20140114
  15. IRON SUCROSE [Concomitant]
     Route: 065
     Dates: start: 20140115, end: 20140115
  16. LIDOCAINE HYDROCHLORIDE INJECTION [Concomitant]
     Indication: ENDOSCOPY UPPER GASTROINTESTINAL TRACT
     Route: 065
     Dates: start: 20140114, end: 20140114
  17. LIDOCAINE HYDROCHLORIDE INJECTION [Concomitant]
     Route: 065
     Dates: start: 20140117, end: 20140117
  18. CALCIUM GLUCONATE [Concomitant]
     Route: 065
     Dates: start: 20140116, end: 20140116
  19. BERBAMINE HYDROCHLORIDE [Concomitant]
     Route: 065
     Dates: start: 20140127, end: 20140207
  20. ESTAZOLAM [Concomitant]
     Route: 065
     Dates: start: 20140202

REACTIONS (2)
  - Dizziness [Not Recovered/Not Resolved]
  - Palpitations [Not Recovered/Not Resolved]
